FAERS Safety Report 8822230 (Version 1)
Quarter: 2012Q4

REPORT INFORMATION
  Report Type: 
  Country: US (occurrence: US)
  Receive Date: 20121003
  Receipt Date: 20121003
  Transmission Date: 20130627
  Serious: Yes (Other)
  Sender: FDA-Public Use
  Company Number: US-PFIZER INC-2012240243

PATIENT
  Age: 52 Year
  Sex: Male
  Weight: 83.9 kg

DRUGS (3)
  1. SUTENT [Suspect]
     Indication: PANCREATIC NEUROENDOCRINE TUMOUR
     Dosage: 37.5 mg, 1x/day
     Dates: start: 20120905, end: 20120905
  2. LISINOPRIL [Concomitant]
     Dosage: 20 mg, 1x/day
  3. LISINOPRIL [Concomitant]
     Dosage: 30 mg, UNK

REACTIONS (3)
  - Blood pressure diastolic increased [Recovered/Resolved]
  - Anxiety [Unknown]
  - Abdominal discomfort [Recovering/Resolving]
